FAERS Safety Report 14436944 (Version 1)
Quarter: 2018Q1

REPORT INFORMATION
  Report Type: Spontaneous
  Country: CA (occurrence: CA)
  Receive Date: 20180125
  Receipt Date: 20180125
  Transmission Date: 20180509
  Serious: Yes (Life-Threatening, Hospitalization)
  Sender: FDA-Public Use
  Company Number: CA-INVENTIA-000189

PATIENT
  Age: 66 Year
  Sex: Female
  Weight: 77.5 kg

DRUGS (5)
  1. MAXERAN [Concomitant]
     Active Substance: METOCLOPRAMIDE HYDROCHLORIDE
  2. PANTOPRAZOLE [Concomitant]
     Active Substance: PANTOPRAZOLE
  3. METFORMIN [Suspect]
     Active Substance: METFORMIN HYDROCHLORIDE
     Indication: TYPE 2 DIABETES MELLITUS
     Dosage: METFORMIN 850 MG 3 TIMES DAILY
  4. PREGABALIN. [Concomitant]
     Active Substance: PREGABALIN
  5. CALCIUM/COLECALCIFEROL [Concomitant]

REACTIONS (3)
  - Renal impairment [Unknown]
  - Lactic acidosis [Recovered/Resolved]
  - Toxicity to various agents [Unknown]
